FAERS Safety Report 9679575 (Version 1)
Quarter: 2013Q4

REPORT INFORMATION
  Report Type: Spontaneous
  Country: US (occurrence: US)
  Receive Date: 20131109
  Receipt Date: 20131109
  Transmission Date: 20140711
  Serious: No
  Sender: FDA-Public Use
  Company Number: US-009507513-1310USA014536

PATIENT
  Age: 24 Year
  Sex: Female
  Weight: 123.81 kg

DRUGS (2)
  1. NEXPLANON [Suspect]
     Indication: CONTRACEPTION
     Dosage: 68 MG, 3 YEAR IMPLANT
     Route: 059
     Dates: start: 20130815
  2. NEXPLANON [Suspect]
     Dosage: UNK
     Route: 059
     Dates: start: 2013

REACTIONS (2)
  - Device breakage [Recovered/Resolved]
  - No adverse event [Unknown]
